FAERS Safety Report 9363445 (Version 1)
Quarter: 2013Q2

REPORT INFORMATION
  Report Type: Spontaneous
  Country: DE (occurrence: None)
  Receive Date: 20130618
  Receipt Date: 20130618
  Transmission Date: 20140414
  Serious: Yes (Other)
  Sender: FDA-Public Use
  Company Number: DKLU1091726

PATIENT
  Sex: 0

DRUGS (5)
  1. COSMEGEN [Suspect]
     Indication: ATYPICAL TERATOID/RHABDOID TUMOUR OF CNS
     Dosage: 45 UG/KG MICROGRAM(S)/KILOGRAM, DAY 1, INTRAVENOUS (NOT OTHERWISE SPECIFIED)
     Route: 042
  2. DOXORUBICIN [Suspect]
     Indication: ATYPICAL TERATOID/RHABDOID TUMOUR OF CNS
     Dosage: 25 MG/M2 MILLIGRAM(S)/SQ. METER, DAYS 1 THROUGH 3, INTRAVENOUS (NOT OTHERWISE SPECIFIED)
     Route: 042
  3. CISPLATIN [Suspect]
     Indication: ATYPICAL TERATOID/RHABDOID TUMOUR OF CNS
     Dosage: 70 MG/M2 MILLIGRAM(S)/SQ. METER, DAY 4, INTRAVENOUS (NOT OTHERWISE SPECIFIED)
     Route: 042
  4. VINCRISTINE [Suspect]
     Indication: ATYPICAL TERATOID/RHABDOID TUMOUR OF CNS
     Dosage: 1.5 MG/M2 MILLIGRAM(S)/SQ. METER, DAY 8 AND 15, INTRAVENOUS (NOT OTHERWISE SPECIFIED)
     Route: 042
  5. METHOTREXATE [Suspect]
     Indication: ATYPICAL TERATOID/RHABDOID TUMOUR OF CNS
     Dosage: 2 MG MILLIGRAM(S), DAY 1 THROUGH 4, INTRAVENOUS (NOT OTHERWISE SPECIFIED)
     Route: 042

REACTIONS (2)
  - Myelitis transverse [None]
  - Toxicity to various agents [None]
